FAERS Safety Report 7936338-0 (Version None)
Quarter: 2011Q4

REPORT INFORMATION
  Report Type: 
  Country: None (occurrence: None)
  Receive Date: 20111121
  Receipt Date: 20111104
  Transmission Date: 20120403
  Serious: Yes (Disabling)
  Sender: FDA-Public Use
  Company Number: 2011MA016281

PATIENT
  Age: 59 Year
  Sex: Female

DRUGS (4)
  1. SIMVASTATIN [Concomitant]
  2. LOSARTAN POTASSIUM [Suspect]
     Dosage: PO
     Route: 048
     Dates: start: 20110722, end: 20110724
  3. DILTIAZEM HCL [Concomitant]
  4. IRBESARTAN [Concomitant]

REACTIONS (1)
  - OEDEMA PERIPHERAL [None]
